FAERS Safety Report 4605980-7 (Version None)
Quarter: 2005Q1

REPORT INFORMATION
  Report Type: 
  Country: None (occurrence: None)
  Receive Date: 20050116
  Receipt Date: 20040108
  Transmission Date: 20050727
  Serious: Yes (Other)
  Sender: FDA-Public Use
  Company Number: K200400023

PATIENT
  Age: 63 Year
  Sex: Male
  Weight: 90.7 kg

DRUGS (3)
  1. PROCANBID [Suspect]
     Indication: HEART RATE INCREASED
     Dosage: 15 MG, BID, ORAL
     Route: 048
     Dates: start: 20030903, end: 20041208
  2. COUMADIN [Concomitant]
  3. OTHERS UNKNOWN MEDICATIONS [Concomitant]

REACTIONS (4)
  - ARTHROPATHY [None]
  - LETHARGY [None]
  - SWELLING [None]
  - SYSTEMIC LUPUS ERYTHEMATOSUS [None]
